FAERS Safety Report 7790925-1 (Version None)
Quarter: 2011Q3

REPORT INFORMATION
  Report Type: 
  Country: None (occurrence: None)
  Receive Date: 20110930
  Receipt Date: 20110930
  Transmission Date: 20111222
  Serious: Yes (Life-Threatening, Hospitalization)
  Sender: FDA-Public Use
  Company Number: None

PATIENT
  Age: 75 Year
  Sex: Female
  Weight: 49.441 kg

DRUGS (1)
  1. RISPERDAL [Suspect]
     Route: 048
     Dates: start: 20080901, end: 20090201

REACTIONS (3)
  - SUBDURAL HAEMATOMA [None]
  - HEAD INJURY [None]
  - NERVOUS SYSTEM DISORDER [None]
